FAERS Safety Report 5278266-8 (Version None)
Quarter: 2007Q1

REPORT INFORMATION
  Report Type: 
  Country: None (occurrence: None)
  Receive Date: 20061207
  Receipt Date: 20060228
  Transmission Date: 20070707
  Serious: Yes (Disabling)
  Sender: FDA-Public Use
  Company Number: 2006UW02253

PATIENT
  Age: 80 Year
  Sex: Male
  Weight: 84.8226 kg

DRUGS (2)
  1. TOPROL-XL [Suspect]
  2. PLAVIX [Concomitant]

REACTIONS (2)
  - ARTHRALGIA [None]
  - MYALGIA [None]
